FAERS Safety Report 4917096-0 (Version None)
Quarter: 2006Q1

REPORT INFORMATION
  Report Type: 
  Country: None (occurrence: None)
  Receive Date: 20060221
  Receipt Date: 20060213
  Transmission Date: 20060701
  Serious: Yes (Other)
  Sender: FDA-Public Use
  Company Number: PHBS2006BR02439

PATIENT
  Age: 60 Year
  Sex: Male

DRUGS (6)
  1. FORASEQ [Suspect]
     Indication: CHRONIC OBSTRUCTIVE PULMONARY DISEASE
     Dosage: 1 DF, BID
  2. PREDNISONE [Concomitant]
  3. ZETSMIN [Concomitant]
     Indication: BLOOD CHOLESTEROL INCREASED
  4. OMEPRAZOLE [Concomitant]
     Indication: STOMACH DISCOMFORT
  5. BEROTEC [Concomitant]
     Indication: EMPHYSEMA
  6. IPRATROPIUM BROMIDE [Concomitant]
     Indication: EMPHYSEMA

REACTIONS (3)
  - DYSPNOEA [None]
  - LUNG INFECTION [None]
  - OEDEMA PERIPHERAL [None]
